FAERS Safety Report 16643561 (Version 1)
Quarter: 2019Q3

REPORT INFORMATION
  Report Type: Spontaneous
  Country: US (occurrence: US)
  Receive Date: 20190729
  Receipt Date: 20190729
  Transmission Date: 20191004
  Serious: No
  Sender: FDA-Public Use
  Company Number: US-PRINSTON PHARMACEUTICAL INC.-2018PRN01482

PATIENT
  Age: 63 Year
  Sex: Female
  Weight: 58.5 kg

DRUGS (3)
  1. LISINOPRIL. [Suspect]
     Active Substance: LISINOPRIL
     Indication: HYPERTENSION
     Dosage: 10 MG, 1X/DAY
     Route: 048
  2. ROPINIROLE HYDROCHLORIDE. [Suspect]
     Active Substance: ROPINIROLE HYDROCHLORIDE
     Indication: RESTLESS LEGS SYNDROME
     Dosage: 2 MG, 1X/DAY
     Route: 048
     Dates: start: 2003
  3. LISINOPRIL. [Suspect]
     Active Substance: LISINOPRIL
     Indication: DIABETES MELLITUS

REACTIONS (3)
  - Rash [Not Recovered/Not Resolved]
  - Frequent bowel movements [Not Recovered/Not Resolved]
  - Coeliac disease [Not Recovered/Not Resolved]
